FAERS Safety Report 9760906 (Version 1)
Quarter: 2013Q4

REPORT INFORMATION
  Report Type: Spontaneous
  Country: US (occurrence: US)
  Receive Date: 20131216
  Receipt Date: 20131216
  Transmission Date: 20140711
  Serious: No
  Sender: FDA-Public Use
  Company Number: US-PFIZER INC-2013357807

PATIENT
  Sex: Female

DRUGS (1)
  1. ALTACE [Suspect]
     Dosage: 5 MG, DAILY
     Dates: start: 2007

REACTIONS (1)
  - Cough [Unknown]
